FAERS Safety Report 6279171-0 (Version None)
Quarter: 2009Q3

REPORT INFORMATION
  Report Type: 
  Country: None (occurrence: None)
  Receive Date: 20090723
  Receipt Date: 20090713
  Transmission Date: 20100115
  Serious: Yes (Hospitalization, Disabling)
  Sender: FDA-Public Use
  Company Number: US-BAYER-200921510NA

PATIENT
  Age: 78 Year
  Sex: Male
  Weight: 66 kg

DRUGS (3)
  1. NEXAVAR [Suspect]
     Indication: HEPATIC NEOPLASM MALIGNANT
     Dosage: TOTAL DAILY DOSE: 400 MG  UNIT DOSE: 200 MG
     Route: 048
     Dates: start: 20090512, end: 20090518
  2. ASPIRIN [Concomitant]
     Dates: start: 20070601
  3. TOPROL-XL [Concomitant]
     Dates: start: 20080301

REACTIONS (8)
  - ABASIA [None]
  - BALANCE DISORDER [None]
  - BLOOD SODIUM DECREASED [None]
  - FALL [None]
  - HYPOPHAGIA [None]
  - INSOMNIA [None]
  - PYREXIA [None]
  - TREMOR [None]
